FAERS Safety Report 23690343 (Version 1)
Quarter: 2024Q2

REPORT INFORMATION
  Report Type: Report from Study
  Country: US (occurrence: US)
  Receive Date: 20240401
  Receipt Date: 20240401
  Transmission Date: 20240716
  Serious: Yes (Hospitalization, Other)
  Sender: FDA-Public Use
  Company Number: US-ABBVIE-5699251

PATIENT
  Age: 70 Year
  Sex: Female

DRUGS (7)
  1. SKYRIZI [Suspect]
     Active Substance: RISANKIZUMAB-RZAA
     Indication: Psoriasis
     Route: 058
     Dates: start: 20190923
  2. COLLAGEN [Concomitant]
     Active Substance: COLLAGEN
     Indication: Product used for unknown indication
     Dosage: 500-50
     Route: 048
  3. SIMVASTATIN [Concomitant]
     Active Substance: SIMVASTATIN
     Indication: Product used for unknown indication
     Dosage: STRENGTH: 20MG
     Route: 048
  4. METFORMIN HYDROCHLORIDE [Concomitant]
     Active Substance: METFORMIN HYDROCHLORIDE
     Indication: Product used for unknown indication
     Dosage: STRENGTH: 500MG
     Route: 048
  5. VITAMIN B12 [Concomitant]
     Active Substance: CYANOCOBALAMIN
     Indication: Product used for unknown indication
     Route: 048
  6. DOXYLAMINE SUCCINATE [Concomitant]
     Active Substance: DOXYLAMINE SUCCINATE
     Indication: Product used for unknown indication
     Dosage: STRENGTH: 25MG
     Route: 048
  7. HERBALS\TURMERIC [Concomitant]
     Active Substance: HERBALS\TURMERIC
     Indication: Product used for unknown indication
     Route: 065

REACTIONS (8)
  - Fluid retention [Recovering/Resolving]
  - Ileostomy closure [Recovering/Resolving]
  - Skin exfoliation [Recovering/Resolving]
  - Decreased appetite [Recovering/Resolving]
  - Muscle spasms [Recovering/Resolving]
  - Hypoaesthesia [Recovering/Resolving]
  - Asthenia [Recovering/Resolving]
  - Chemotherapy [Unknown]

NARRATIVE: CASE EVENT DATE: 20240214
